FAERS Safety Report 5894698-9 (Version None)
Quarter: 2008Q3

REPORT INFORMATION
  Report Type: 
  Country: None (occurrence: None)
  Receive Date: 20080924
  Receipt Date: 20080507
  Transmission Date: 20090109
  Serious: No
  Sender: FDA-Public Use
  Company Number: US-ASTRAZENECA-2008UW09372

PATIENT
  Age: 65 Year
  Sex: Male
  Weight: 90.7 kg

DRUGS (3)
  1. SEROQUEL [Suspect]
     Dosage: 600 MG IN AM AND 400 MG IN PM
     Route: 048
     Dates: start: 20050101
  2. ELAVIL [Concomitant]
  3. BLOOD PRESSURE MEDICATION [Concomitant]

REACTIONS (2)
  - CATARACT [None]
  - LIVER DISORDER [None]
